FAERS Safety Report 10184258 (Version 1)
Quarter: 2014Q2

REPORT INFORMATION
  Report Type: Spontaneous
  Country: US (occurrence: US)
  Receive Date: 20140520
  Receipt Date: 20140520
  Transmission Date: 20141212
  Serious: No
  Sender: FDA-Public Use
  Company Number: US-ASTRAZENECA-2013SE90557

PATIENT
  Age: 75 Year
  Sex: Male
  Weight: 90.7 kg

DRUGS (8)
  1. RHINOCORT [Suspect]
     Indication: EPISTAXIS
     Dosage: 32MCG 2 SPRAYS PER NOSTRIL DAILY
     Route: 045
     Dates: start: 201310, end: 20131202
  2. SYNTHROID [Concomitant]
     Indication: HYPOTHYROIDISM
     Route: 048
  3. MICARDIS [Concomitant]
     Indication: CARDIAC DISORDER
     Route: 048
  4. NIASPAN [Concomitant]
     Indication: CARDIAC DISORDER
     Dosage: 2 500MG TABLETS DAILY
     Route: 048
  5. LIPITOR [Concomitant]
     Indication: BLOOD CHOLESTEROL ABNORMAL
     Route: 048
  6. LIPITOR [Concomitant]
     Indication: CARDIAC DISORDER
     Route: 048
  7. VERAPAMIL ER [Concomitant]
     Indication: CARDIAC DISORDER
     Route: 048
  8. XARELTO [Concomitant]
     Indication: ANTICOAGULANT THERAPY
     Route: 048

REACTIONS (4)
  - Cough [Unknown]
  - Dysphonia [Unknown]
  - Epistaxis [Recovering/Resolving]
  - Drug dose omission [Unknown]
